FAERS Safety Report 18775084 (Version 1)
Quarter: 2021Q1

REPORT INFORMATION
  Report Type: Spontaneous
  Country: US (occurrence: US)
  Receive Date: 20210122
  Receipt Date: 20210122
  Transmission Date: 20210419
  Serious: Yes (Other)
  Sender: FDA-Public Use
  Company Number: US-AMGEN-USASP2021008278

PATIENT
  Age: 64 Year
  Sex: Female

DRUGS (2)
  1. CABOZANTINIB [Concomitant]
     Active Substance: CABOZANTINIB
     Dosage: 60 MILLIGRAM, QD
  2. XGEVA [Suspect]
     Active Substance: DENOSUMAB
     Indication: RENAL CELL CARCINOMA
     Dosage: 60 MILLIGRAM, QD
     Route: 065

REACTIONS (2)
  - Hypothyroidism [Unknown]
  - Metastatic renal cell carcinoma [Unknown]
